FAERS Safety Report 12203698 (Version 1)
Quarter: 2016Q1

REPORT INFORMATION
  Report Type: Other
  Country: US (occurrence: US)
  Receive Date: 20160323
  Receipt Date: 20160323
  Transmission Date: 20160526
  Serious: Yes (Hospitalization)
  Sender: FDA-Public Use
  Company Number: US-LUPIN PHARMACEUTICALS INC.-2016-01104

PATIENT
  Age: 20 Year
  Sex: Female

DRUGS (2)
  1. SERTRALINE [Suspect]
     Active Substance: SERTRALINE HYDROCHLORIDE
     Route: 065
  2. SERTRALINE [Suspect]
     Active Substance: SERTRALINE HYDROCHLORIDE
     Indication: MAJOR DEPRESSION
     Route: 065

REACTIONS (3)
  - Suicidal behaviour [Recovering/Resolving]
  - Bipolar disorder [Recovering/Resolving]
  - Psychotic behaviour [Recovering/Resolving]
